FAERS Safety Report 6610260-4 (Version None)
Quarter: 2010Q1

REPORT INFORMATION
  Report Type: 
  Country: None (occurrence: None)
  Receive Date: 20100302
  Receipt Date: 20100222
  Transmission Date: 20100710
  Serious: Yes (Death)
  Sender: FDA-Public Use
  Company Number: US-PFIZER INC-2010022896

PATIENT
  Sex: Male

DRUGS (2)
  1. NELFINAVIR MESILATE [Suspect]
     Indication: HIV INFECTION
     Dosage: 1250 MG, 2X/DAY
  2. NELFINAVIR MESILATE [Suspect]
     Dosage: 3750 MG, 2X/DAY

REACTIONS (1)
  - PULMONARY HAEMORRHAGE [None]
